FAERS Safety Report 9850098 (Version 1)
Quarter: 2014Q1

REPORT INFORMATION
  Report Type: Spontaneous
  Country: MX (occurrence: MX)
  Receive Date: 20140128
  Receipt Date: 20140128
  Transmission Date: 20141002
  Serious: Yes (Other)
  Sender: FDA-Public Use
  Company Number: PHHY2014MX009858

PATIENT
  Age: 59 Year
  Sex: Male

DRUGS (2)
  1. EXFORGE [Suspect]
     Indication: HYPERTENSION
     Dosage: 1 DF (160/5 MG), DAILY
     Route: 048
     Dates: start: 201101
  2. TENORMIN [Concomitant]
     Indication: HEART RATE ABNORMAL
     Dosage: 50 MG, DAILY

REACTIONS (1)
  - Diabetes mellitus [Not Recovered/Not Resolved]
